FAERS Safety Report 5494563-5 (Version None)
Quarter: 2007Q4

REPORT INFORMATION
  Report Type: 
  Country: None (occurrence: None)
  Receive Date: 20071022
  Receipt Date: 20070924
  Transmission Date: 20080405
  Serious: Yes (Death)
  Sender: FDA-Public Use
  Company Number: 07-031B

PATIENT
  Age: 47 Year
  Sex: Female

DRUGS (1)
  1. LORTAB [Suspect]
     Indication: BACK PAIN
     Dosage: ORALLY 4X'S A DAY
     Route: 048

REACTIONS (1)
  - DEATH [None]
